FAERS Safety Report 11908080 (Version 3)
Quarter: 2018Q2

REPORT INFORMATION
  Report Type: Spontaneous
  Country: BR (occurrence: BR)
  Receive Date: 20160111
  Receipt Date: 20180618
  Transmission Date: 20180711
  Serious: Yes (Other)
  Sender: FDA-Public Use
  Company Number: BR-JNJFOC-20160106225

PATIENT
  Age: 52 Year
  Sex: Female
  Weight: 111 kg

DRUGS (12)
  1. BIO-MANGUINHOS INFLIXIMABE [Suspect]
     Active Substance: INFLIXIMAB
     Indication: PSORIASIS
     Dosage: 2 YEARS AGO
     Route: 042
     Dates: start: 20130926
  2. KETOROLAC [Concomitant]
     Active Substance: KETOROLAC\KETOROLAC TROMETHAMINE
     Route: 065
  3. BIO-MANGUINHOS INFLIXIMABE [Suspect]
     Active Substance: INFLIXIMAB
     Indication: PSORIASIS
     Route: 042
     Dates: start: 201611
  4. RIVOTRIL [Suspect]
     Active Substance: CLONAZEPAM
     Indication: PRODUCT USED FOR UNKNOWN INDICATION
     Route: 065
  5. GABAPENTIN. [Concomitant]
     Active Substance: GABAPENTIN
     Route: 065
  6. TYLENOL [Concomitant]
     Active Substance: ACETAMINOPHEN
     Route: 065
  7. DEOCIL [Concomitant]
     Active Substance: KETOROLAC TROMETHAMINE
     Route: 065
  8. BIO-MANGUINHOS INFLIXIMABE [Suspect]
     Active Substance: INFLIXIMAB
     Indication: PSORIATIC ARTHROPATHY
     Route: 042
     Dates: start: 20160302, end: 201611
  9. SERTRALINE [Concomitant]
     Active Substance: SERTRALINE HYDROCHLORIDE
     Route: 065
  10. BIO-MANGUINHOS INFLIXIMABE [Suspect]
     Active Substance: INFLIXIMAB
     Indication: PSORIATIC ARTHROPATHY
     Dosage: 2 YEARS AGO
     Route: 042
     Dates: start: 20130926
  11. BIO-MANGUINHOS INFLIXIMABE [Suspect]
     Active Substance: INFLIXIMAB
     Indication: PSORIASIS
     Route: 042
     Dates: start: 20160302, end: 201611
  12. BIO-MANGUINHOS INFLIXIMABE [Suspect]
     Active Substance: INFLIXIMAB
     Indication: PSORIATIC ARTHROPATHY
     Route: 042
     Dates: start: 201611

REACTIONS (6)
  - Psoriasis [Not Recovered/Not Resolved]
  - Product use issue [Unknown]
  - Visual impairment [Unknown]
  - Infusion related reaction [Recovered/Resolved]
  - Weight decreased [Unknown]
  - Off label use [Unknown]

NARRATIVE: CASE EVENT DATE: 20130926
